FAERS Safety Report 6763583-2 (Version None)
Quarter: 2010Q2

REPORT INFORMATION
  Report Type: 
  Country: None (occurrence: None)
  Receive Date: 20100610
  Receipt Date: 20100607
  Transmission Date: 20101027
  Serious: Yes (Life-Threatening, Hospitalization)
  Sender: FDA-Public Use
  Company Number: PHEH2009US17302

PATIENT
  Sex: Male
  Weight: 67.18 kg

DRUGS (3)
  1. EXJADE [Suspect]
     Indication: MYELODYSPLASTIC SYNDROME
     Dosage: 1000 MG, DAILY
     Route: 048
     Dates: start: 20091124
  2. GLYBURIDE [Concomitant]
  3. TRAMADOL [Concomitant]
     Dosage: UNK

REACTIONS (9)
  - ABDOMINAL PAIN UPPER [None]
  - CONSTIPATION [None]
  - FATIGUE [None]
  - KLEBSIELLA TEST POSITIVE [None]
  - MULTIPLE MYELOMA [None]
  - PRURITUS [None]
  - PYREXIA [None]
  - SEPSIS [None]
  - SERUM FERRITIN INCREASED [None]
